FAERS Safety Report 5275561-3 (Version None)
Quarter: 2007Q1

REPORT INFORMATION
  Report Type: 
  Country: None (occurrence: None)
  Receive Date: 20061213
  Receipt Date: 20060421
  Transmission Date: 20070707
  Serious: Yes (Hospitalization)
  Sender: FDA-Public Use
  Company Number: 2006UW07172

PATIENT
  Age: 18 Year
  Sex: Male
  Weight: 68.038 kg

DRUGS (8)
  1. SEROQUEL [Suspect]
     Indication: BIPOLAR DISORDER
     Dosage: 25 MG PO
     Route: 048
     Dates: start: 20051101
  2. SEROQUEL [Suspect]
     Indication: INSOMNIA
     Dosage: 25 MG PO
     Route: 048
     Dates: start: 20051101
  3. SEROQUEL [Suspect]
     Indication: BIPOLAR DISORDER
     Dosage: 25 MG PO
     Route: 048
  4. SEROQUEL [Suspect]
     Indication: INSOMNIA
     Dosage: 25 MG PO
     Route: 048
  5. ZYPREXA [Concomitant]
  6. KLONOPIN [Concomitant]
  7. ATIVAN [Concomitant]
  8. TOPAMAX [Concomitant]

REACTIONS (6)
  - ACCIDENTAL OVERDOSE [None]
  - AGITATION [None]
  - COGNITIVE DISORDER [None]
  - DEPRESSION [None]
  - NIGHTMARE [None]
  - THINKING ABNORMAL [None]
